FAERS Safety Report 5404952-2 (Version None)
Quarter: 2007Q3

REPORT INFORMATION
  Report Type: 
  Country: None (occurrence: None)
  Receive Date: 20070801
  Receipt Date: 20070627
  Transmission Date: 20080115
  Serious: Yes (Hospitalization)
  Sender: FDA-Public Use
  Company Number: 2007BI015769

PATIENT
  Age: 47 Year
  Sex: Female

DRUGS (2)
  1. NATALIZUMAB [Suspect]
     Indication: MULTIPLE SCLEROSIS
     Dosage: 300 MG; QM; IV
     Route: 042
     Dates: start: 20070321
  2. AVONEX [Concomitant]

REACTIONS (5)
  - BACK PAIN [None]
  - CEREBROVASCULAR ACCIDENT [None]
  - CONVULSION [None]
  - HEART RATE INCREASED [None]
  - PAIN IN EXTREMITY [None]
